FAERS Safety Report 8534354-1 (Version None)
Quarter: 2012Q3

REPORT INFORMATION
  Report Type: 
  Country: None (occurrence: None)
  Receive Date: 20120724
  Receipt Date: 20120717
  Transmission Date: 20120928
  Serious: Yes (Other)
  Sender: FDA-Public Use
  Company Number: PHHY2012US061301

PATIENT

DRUGS (2)
  1. DOXYCYCLINE [Suspect]
     Indication: SCLEROTHERAPY
     Dosage: 300 MG, UNK
  2. DOXYCYCLINE [Suspect]
     Dosage: 255 MG, UNK

REACTIONS (4)
  - METABOLIC ACIDOSIS [None]
  - HYPOGLYCAEMIA [None]
  - DRUG LEVEL INCREASED [None]
  - HAEMOLYTIC ANAEMIA [None]
